FAERS Safety Report 7942600-8 (Version None)
Quarter: 2011Q4

REPORT INFORMATION
  Report Type: 
  Country: None (occurrence: None)
  Receive Date: 20111128
  Receipt Date: 20111123
  Transmission Date: 20120403
  Serious: Yes (Other)
  Sender: FDA-Public Use
  Company Number: DE-GLAXOSMITHKLINE-D0073318A

PATIENT
  Sex: Male

DRUGS (4)
  1. LAMICTAL [Concomitant]
     Indication: EPILEPSY
     Dosage: 400MG TWICE PER DAY
     Route: 048
  2. TROBALT [Suspect]
     Indication: EPILEPSY
     Route: 048
     Dates: start: 20110601, end: 20110831
  3. OXCARBAZEPINE [Concomitant]
     Indication: EPILEPSY
     Route: 048
  4. ZYPREXA [Concomitant]
     Indication: SCHIZOPHRENIFORM DISORDER
     Dosage: 10MG PER DAY
     Route: 048

REACTIONS (14)
  - STUPOR [None]
  - RASH [None]
  - ILLUSION [None]
  - DIZZINESS [None]
  - FATIGUE [None]
  - SLOW RESPONSE TO STIMULI [None]
  - HALLUCINATION [None]
  - HYPERHIDROSIS [None]
  - DYSARTHRIA [None]
  - DELUSION [None]
  - SPEECH DISORDER [None]
  - APHASIA [None]
  - URINARY RETENTION [None]
  - TONGUE PARALYSIS [None]
